FAERS Safety Report 9452945 (Version 1)
Quarter: 2013Q3

REPORT INFORMATION
  Report Type: Spontaneous
  Country: US (occurrence: US)
  Receive Date: 20130812
  Receipt Date: 20130812
  Transmission Date: 20140515
  Serious: No
  Sender: FDA-Public Use
  Company Number: US-BAYER-2013-096454

PATIENT
  Age: 61 Year
  Sex: Female

DRUGS (1)
  1. CIPRO [Suspect]
     Indication: RESPIRATORY TRACT INFECTION
     Dosage: UNK
     Route: 048
     Dates: start: 20130524, end: 20130531

REACTIONS (1)
  - Arthralgia [Not Recovered/Not Resolved]
